FAERS Safety Report 4934179-X (Version None)
Quarter: 2006Q1

REPORT INFORMATION
  Report Type: 
  Country: None (occurrence: None)
  Receive Date: 20060303
  Receipt Date: 20060217
  Transmission Date: 20060701
  Serious: Yes (Hospitalization, Other)
  Sender: FDA-Public Use
  Company Number: NL-2006-003158

PATIENT
  Age: 25 Year
  Sex: Female
  Weight: 75 kg

DRUGS (1)
  1. YASMIN [Suspect]
     Dosage: ORAL
     Route: 048
     Dates: start: 20050927

REACTIONS (5)
  - ACCIDENT [None]
  - CARDIAC VALVE DISEASE [None]
  - JOINT INJURY [None]
  - PULMONARY EMBOLISM [None]
  - THROMBOSIS [None]
